FAERS Safety Report 5754514-2 (Version None)
Quarter: 2008Q2

REPORT INFORMATION
  Report Type: 
  Country: None (occurrence: None)
  Receive Date: 20080530
  Receipt Date: 20080213
  Transmission Date: 20081010
  Serious: No
  Sender: FDA-Public Use
  Company Number: US-BOEHRINGER INGELHEIM GMBH, GERMANY-2007-BP-26584BP

PATIENT
  Sex: Female

DRUGS (8)
  1. SPIRIVA [Suspect]
     Indication: ASTHMA
     Route: 055
  2. FLECAINIDE ACETATE [Concomitant]
     Indication: CARDIAC DISORDER
  3. SINGULAIR [Concomitant]
  4. PROTONIX [Concomitant]
  5. TRAZODONE HCL [Concomitant]
  6. ALPRAZOLAM [Concomitant]
  7. ALBUTEROL [Concomitant]
  8. RESTASIS [Concomitant]

REACTIONS (6)
  - CONSTIPATION [None]
  - DIZZINESS [None]
  - DRY EYE [None]
  - EPISTAXIS [None]
  - EYE DISCHARGE [None]
  - GLAUCOMA [None]
